FAERS Safety Report 21325005 (Version 1)
Quarter: 2022Q3

REPORT INFORMATION
  Report Type: Spontaneous
  Country: US (occurrence: US)
  Receive Date: 20220912
  Receipt Date: 20220912
  Transmission Date: 20221027
  Serious: No
  Sender: FDA-Public Use
  Company Number: US-BIOGEN-2022BI01153970

PATIENT
  Sex: Female

DRUGS (23)
  1. TYSABRI [Suspect]
     Active Substance: NATALIZUMAB
     Indication: Product used for unknown indication
     Route: 050
  2. DYAZIDE [Concomitant]
     Active Substance: HYDROCHLOROTHIAZIDE\TRIAMTERENE
     Route: 050
  3. CYCLOBENZAPRINE [Concomitant]
     Active Substance: CYCLOBENZAPRINE
     Route: 050
  4. OMEPRAZOLE [Concomitant]
     Active Substance: OMEPRAZOLE
     Route: 050
  5. TOPIRAMATE [Concomitant]
     Active Substance: TOPIRAMATE
     Route: 050
  6. GABAPENTIN [Concomitant]
     Active Substance: GABAPENTIN
     Route: 050
  7. TOPIRAMATE [Concomitant]
     Active Substance: TOPIRAMATE
     Route: 050
  8. NORTRIPTYLINE [Concomitant]
     Active Substance: NORTRIPTYLINE
     Route: 050
  9. PRIMIDONE [Concomitant]
     Active Substance: PRIMIDONE
     Route: 050
  10. TRAZODONE [Concomitant]
     Active Substance: TRAZODONE HYDROCHLORIDE
     Route: 050
  11. EFFEXOR [Concomitant]
     Active Substance: VENLAFAXINE HYDROCHLORIDE
     Route: 050
  12. VALIUM [Concomitant]
     Active Substance: DIAZEPAM
     Route: 050
  13. FLONASE [Concomitant]
     Active Substance: FLUTICASONE PROPIONATE
     Route: 050
  14. ATARAX [Concomitant]
     Active Substance: HYDROXYZINE HYDROCHLORIDE
     Route: 050
  15. ZOFRAN [Concomitant]
     Active Substance: ONDANSETRON HYDROCHLORIDE
     Route: 050
  16. MIRALAX [Concomitant]
     Active Substance: POLYETHYLENE GLYCOL 3350
     Route: 050
  17. PREDNISONE [Concomitant]
     Active Substance: PREDNISONE
     Route: 050
  18. MAXALT [Concomitant]
     Active Substance: RIZATRIPTAN BENZOATE
     Route: 050
  19. RESTORIL [Concomitant]
     Active Substance: TEMAZEPAM
     Route: 050
  20. LOTRISONE [Concomitant]
     Active Substance: BETAMETHASONE DIPROPIONATE\CLOTRIMAZOLE
     Route: 050
  21. ZANAFLEX [Concomitant]
     Active Substance: TIZANIDINE HYDROCHLORIDE
     Route: 050
  22. OCREVUS [Concomitant]
     Active Substance: OCRELIZUMAB
     Route: 050
  23. CARBAMAZEPINE [Concomitant]
     Active Substance: CARBAMAZEPINE
     Route: 050

REACTIONS (1)
  - Therapeutic product effect decreased [Unknown]
